FAERS Safety Report 5154909-4 (Version None)
Quarter: 2006Q4

REPORT INFORMATION
  Report Type: 
  Country: None (occurrence: None)
  Receive Date: 20061121
  Receipt Date: 20060921
  Transmission Date: 20070319
  Serious: No
  Sender: FDA-Public Use
  Company Number: 2006AP04465

PATIENT
  Age: 916 Month
  Sex: Female

DRUGS (18)
  1. ARIMIDEX [Suspect]
     Indication: BREAST CANCER
     Route: 048
     Dates: start: 20030101, end: 20040801
  2. ARIMIDEX [Suspect]
     Route: 048
     Dates: start: 20040901, end: 20060827
  3. NOLVADEX [Suspect]
     Indication: BREAST CANCER
     Route: 048
     Dates: start: 20040801, end: 20040901
  4. IPD [Concomitant]
     Route: 048
  5. MEIACT [Concomitant]
     Route: 048
  6. AMARYL [Concomitant]
     Route: 048
  7. GASMOTIN [Concomitant]
     Route: 048
  8. GASTER D [Concomitant]
     Route: 048
  9. CELESTONE [Concomitant]
     Route: 048
  10. DEPAS [Concomitant]
     Route: 048
  11. HALCION [Concomitant]
     Route: 048
  12. PURSENNID [Concomitant]
     Route: 048
  13. BASEN [Concomitant]
     Route: 048
  14. MUCOSTA [Concomitant]
     Route: 048
  15. LAC-B [Concomitant]
     Route: 048
  16. LIPOVAS [Concomitant]
     Route: 048
  17. RESPLEN [Concomitant]
     Route: 048
  18. ONEALFA [Concomitant]
     Route: 048

REACTIONS (1)
  - CYSTITIS INTERSTITIAL [None]
